FAERS Safety Report 11471864 (Version 1)
Quarter: 2015Q3

REPORT INFORMATION
  Report Type: Spontaneous
  Country: GB (occurrence: GB)
  Receive Date: 20150908
  Receipt Date: 20150908
  Transmission Date: 20151125
  Serious: Yes (Life-Threatening)
  Sender: FDA-Public Use
  Company Number: GB-FERRINGPH-2015FE02953

PATIENT

DRUGS (1)
  1. PROPESS [Suspect]
     Active Substance: DINOPROSTONE
     Indication: LABOUR INDUCTION
     Dates: start: 20150815, end: 20150816

REACTIONS (3)
  - Postpartum haemorrhage [Recovered/Resolved with Sequelae]
  - Maternal exposure during pregnancy [None]
  - Uterine rupture [Recovered/Resolved with Sequelae]

NARRATIVE: CASE EVENT DATE: 20150815
